FAERS Safety Report 6529073-7 (Version None)
Quarter: 2009Q4

REPORT INFORMATION
  Report Type: 
  Country: None (occurrence: None)
  Receive Date: 20091222
  Receipt Date: 20091201
  Transmission Date: 20100525
  Serious: Yes (Hospitalization)
  Sender: FDA-Public Use
  Company Number: AE-2009-310

PATIENT
  Age: 79 Year
  Sex: Female
  Weight: 80 kg

DRUGS (6)
  1. FUROSEMIDE [Suspect]
     Indication: HYPERTENSION
     Dosage: 250NG, SINGLE, ORAL
     Route: 048
     Dates: start: 20080916
  2. LISINOPRIL [Concomitant]
  3. SIMVASTATIN [Concomitant]
  4. LEVODOPA, BENSERAZIDE [Concomitant]
  5. NALOXONE HYDROCHLORIDE [Concomitant]
  6. TILIDINE HYDROCHLORIDE [Concomitant]

REACTIONS (2)
  - CIRCULATORY COLLAPSE [None]
  - UNEVALUABLE EVENT [None]
